FAERS Safety Report 15644731 (Version 5)
Quarter: 2019Q3

REPORT INFORMATION
  Report Type: Spontaneous
  Country: RS (occurrence: RS)
  Receive Date: 20181121
  Receipt Date: 20190710
  Transmission Date: 20191004
  Serious: Yes (Death, Hospitalization, Other)
  Sender: FDA-Public Use
  Company Number: RS-SA-2018SA317282

PATIENT
  Age: 11 Month
  Sex: Male

DRUGS (3)
  1. MYOZYME [Suspect]
     Active Substance: ALGLUCOSIDASE ALFA
     Indication: GLYCOGEN STORAGE DISEASE TYPE II
     Dosage: UNK UNK, UNK
     Route: 041
     Dates: start: 20180426
  2. MYOZYME [Suspect]
     Active Substance: ALGLUCOSIDASE ALFA
     Dosage: UNK UNK, QOW
     Route: 041
     Dates: start: 20180918, end: 20180918
  3. MYOZYME [Suspect]
     Active Substance: ALGLUCOSIDASE ALFA
     Dosage: UNK
     Route: 041
     Dates: start: 20181011, end: 20181122

REACTIONS (17)
  - Pneumonia [Unknown]
  - Arterial stenosis [Unknown]
  - Cardiac murmur [Unknown]
  - Infection [Not Recovered/Not Resolved]
  - Respiratory muscle weakness [Unknown]
  - Atelectasis [Unknown]
  - C-reactive protein abnormal [Unknown]
  - Hypotonia [Unknown]
  - Psychomotor skills impaired [Unknown]
  - Areflexia [Unknown]
  - Respiratory tract infection [Not Recovered/Not Resolved]
  - Peripheral artery thrombosis [Recovered/Resolved with Sequelae]
  - Acute respiratory distress syndrome [Not Recovered/Not Resolved]
  - Cardiac arrest [Fatal]
  - Condition aggravated [Recovering/Resolving]
  - Condition aggravated [Not Recovered/Not Resolved]
  - Necrosis [Unknown]

NARRATIVE: CASE EVENT DATE: 20180929
